FAERS Safety Report 24206093 (Version 1)
Quarter: 2024Q3

REPORT INFORMATION
  Report Type: Spontaneous
  Country: US (occurrence: US)
  Receive Date: 20240813
  Receipt Date: 20240813
  Transmission Date: 20241016
  Serious: Yes (Other)
  Sender: PFIZER
  Company Number: US-PFIZER INC-PV202300187577

PATIENT
  Age: 54 Year
  Sex: Female

DRUGS (2)
  1. ZAVZPRET [Interacting]
     Active Substance: ZAVEGEPANT HYDROCHLORIDE
     Indication: Headache
     Dosage: 10 MG, AS NEEDED (EVERY 2 TO 4 HOURS AS NEEDED, LIMIT 3 EVERY 24 HOURS, LIMIT 3 DAYS A WEEK)
     Route: 045
  2. ZAVZPRET [Interacting]
     Active Substance: ZAVEGEPANT HYDROCHLORIDE
     Dosage: USE 1 SPRAY IN 1 NOSTRIL AS NEEDED EVERY 24 HOURS
     Route: 045

REACTIONS (5)
  - Loss of consciousness [Unknown]
  - Drug interaction [Unknown]
  - Abnormal behaviour [Unknown]
  - Epistaxis [Unknown]
  - Off label use [Unknown]
